FAERS Safety Report 5480857-6 (Version None)
Quarter: 2007Q4

REPORT INFORMATION
  Report Type: 
  Country: None (occurrence: None)
  Receive Date: 20071004
  Receipt Date: 20070925
  Transmission Date: 20080405
  Serious: Yes (Hospitalization)
  Sender: FDA-Public Use
  Company Number: E2090-00313-SPO-JP

PATIENT
  Age: 1 Year
  Sex: Female

DRUGS (2)
  1. ZONISAMIDE [Suspect]
     Dosage: ;60 MG, 2 IN 1 D, ORAL
     Dates: start: 20070905, end: 20070905
  2. ZONISAMIDE [Suspect]
     Dosage: ;60 MG, 2 IN 1 D, ORAL
     Dates: start: 20070907

REACTIONS (6)
  - COORDINATION ABNORMAL [None]
  - CRYING [None]
  - DRUG INEFFECTIVE [None]
  - EYELID PTOSIS [None]
  - LOSS OF CONSCIOUSNESS [None]
  - TONIC CONVULSION [None]
